FAERS Safety Report 9223816 (Version 3)
Quarter: 2013Q2

REPORT INFORMATION
  Report Type: Spontaneous
  Country: US (occurrence: US)
  Receive Date: 20130410
  Receipt Date: 20130424
  Transmission Date: 20140414
  Serious: Yes (Death)
  Sender: FDA-Public Use
  Company Number: US-GILEAD-2013-0073246

PATIENT
  Age: 59 Year
  Sex: Female

DRUGS (9)
  1. LETAIRIS [Suspect]
     Indication: PULMONARY HYPERTENSION
     Route: 048
     Dates: start: 20120124, end: 20130323
  2. LETAIRIS [Suspect]
     Indication: SCLERODERMA
     Dosage: 10 MG, UNK
     Dates: start: 20070726
  3. LETAIRIS [Suspect]
     Indication: CONNECTIVE TISSUE DISORDER
  4. SINGULAIR [Concomitant]
  5. AUGMENTIN                          /00756801/ [Concomitant]
  6. VITAMIN D3 [Concomitant]
  7. LEVOTHYROXINE [Concomitant]
  8. NASONEX [Concomitant]
  9. ADVAIR [Concomitant]

REACTIONS (1)
  - Unevaluable event [Fatal]
